FAERS Safety Report 5799332-4 (Version None)
Quarter: 2008Q3

REPORT INFORMATION
  Report Type: 
  Country: None (occurrence: None)
  Receive Date: 20080702
  Receipt Date: 20080623
  Transmission Date: 20090109
  Serious: Yes (Other)
  Sender: FDA-Public Use
  Company Number: US-PFIZER INC-2008052901

PATIENT
  Sex: Female
  Weight: 78 kg

DRUGS (11)
  1. CHANTIX [Suspect]
     Indication: SMOKING CESSATION THERAPY
  2. ALORA [Concomitant]
     Route: 062
  3. DESYREL [Concomitant]
     Indication: DEPRESSION
  4. SPIRONOLACTONE [Concomitant]
  5. PREVACID [Concomitant]
     Indication: GASTROOESOPHAGEAL REFLUX DISEASE
  6. CLONAZEPAM [Concomitant]
     Indication: ANXIETY
  7. NADOLOL [Concomitant]
     Indication: HYPERTENSION
  8. AMARYL [Concomitant]
     Indication: DIABETES MELLITUS
  9. ALLEGRA [Concomitant]
     Indication: HOUSE DUST ALLERGY
  10. ADVAIR DISKUS 100/50 [Concomitant]
     Indication: ASTHMA
  11. NASACORT [Concomitant]
     Indication: ASTHMA

REACTIONS (1)
  - BLOOD GLUCOSE INCREASED [None]
